FAERS Safety Report 16570511 (Version 1)
Quarter: 2019Q3

REPORT INFORMATION
  Report Type: Report from Study
  Country: None (occurrence: US)
  Receive Date: 20190715
  Receipt Date: 20190715
  Transmission Date: 20191004
  Serious: Yes (Hospitalization, Other)
  Sender: FDA-Public Use
  Company Number: US-ABBVIE-19K-163-2849591-00

PATIENT
  Sex: Female

DRUGS (1)
  1. HUMIRA [Suspect]
     Active Substance: ADALIMUMAB
     Indication: RHEUMATOID ARTHRITIS
     Dosage: CITRATE FREE
     Route: 058

REACTIONS (9)
  - General symptom [Unknown]
  - Lymphadenopathy [Unknown]
  - Dementia Alzheimer^s type [Unknown]
  - Lymphoma [Unknown]
  - Meningitis [Unknown]
  - Dementia [Unknown]
  - Vomiting [Unknown]
  - Nausea [Unknown]
  - Confusional state [Unknown]
